FAERS Safety Report 16641955 (Version 2)
Quarter: 2021Q3

REPORT INFORMATION
  Report Type: Spontaneous
  Country: DE (occurrence: DE)
  Receive Date: 20190729
  Receipt Date: 20210723
  Transmission Date: 20211014
  Serious: Yes (Other)
  Sender: FDA-Public Use
  Company Number: PHHY2019DE170266

PATIENT
  Age: 32 Year
  Sex: Female
  Weight: 60 kg

DRUGS (6)
  1. METHOTREXATE. [Suspect]
     Active Substance: METHOTREXATE
     Dosage: UNK
     Route: 065
     Dates: start: 201212, end: 201301
  2. AZATHIOPRINE. [Suspect]
     Active Substance: AZATHIOPRINE
     Dosage: UNK
     Route: 065
     Dates: start: 201212, end: 201301
  3. 6?MERCAPTOPURINE MONOHYDRATE [Suspect]
     Active Substance: MERCAPTOPURINE
     Indication: COLITIS ULCERATIVE
     Dosage: UNK
     Route: 065
  4. AZATHIOPRINE. [Suspect]
     Active Substance: AZATHIOPRINE
     Indication: COLITIS ULCERATIVE
     Dosage: UNK
     Route: 065
  5. 6?MERCAPTOPURINE MONOHYDRATE [Suspect]
     Active Substance: MERCAPTOPURINE
     Dosage: UNK
     Route: 065
     Dates: start: 201212, end: 201301
  6. METHOTREXATE. [Suspect]
     Active Substance: METHOTREXATE
     Indication: COLITIS ULCERATIVE
     Dosage: UNK
     Route: 065

REACTIONS (3)
  - Hepatitis [Unknown]
  - Pancreatitis [Unknown]
  - Drug intolerance [Unknown]
